FAERS Safety Report 8828596 (Version 1)
Quarter: 2012Q4

REPORT INFORMATION
  Report Type: 
  Country: FR (occurrence: FR)
  Receive Date: 20121005
  Receipt Date: 20121005
  Transmission Date: 20130627
  Serious: Yes (Death, Other)
  Sender: FDA-Public Use
  Company Number: FR-ROCHE-1139919

PATIENT
  Age: 57 Year
  Sex: Male

DRUGS (4)
  1. CAPECITABINE [Suspect]
     Indication: COLORECTAL CANCER METASTATIC
     Route: 048
  2. LEUCOVORIN [Suspect]
     Indication: COLORECTAL CANCER METASTATIC
  3. IRINOTECAN [Suspect]
     Indication: COLORECTAL CANCER METASTATIC
  4. BEVACIZUMAB [Suspect]
     Indication: COLORECTAL CANCER METASTATIC
     Route: 065

REACTIONS (4)
  - Death [Fatal]
  - Diarrhoea [Unknown]
  - Neutropenia [Unknown]
  - Sepsis [Unknown]
